FAERS Safety Report 8344631-5 (Version None)
Quarter: 2012Q2

REPORT INFORMATION
  Report Type: 
  Country: None (occurrence: None)
  Receive Date: 20120508
  Receipt Date: 20120502
  Transmission Date: 20120825
  Serious: Yes (Hospitalization)
  Sender: FDA-Public Use
  Company Number: US-BAYER-2012-043740

PATIENT
  Age: 27 Year
  Sex: Female
  Weight: 65.76 kg

DRUGS (9)
  1. ALBUTEROL [Concomitant]
     Dosage: EVERY 4-6 HOURS AS NEEDED WHEEZING OR SHORTNESS OF BREATH
  2. ANTIBIOTICS [Concomitant]
     Indication: SINUSITIS
  3. YAZ [Suspect]
     Dosage: UNK
     Dates: start: 20080301
  4. ROBITUSSIN WITH CODEINE [Concomitant]
     Dosage: UNK UNK, PRN
  5. DOXYCYCLINE [Concomitant]
     Dosage: 100 MG, BID
  6. NAPROXEN (ALEVE) [Concomitant]
  7. NABUMETONE [Concomitant]
     Dosage: 500 MG, BID
     Route: 048
  8. ZITHROMAX [Concomitant]
     Indication: SINUSITIS
     Route: 048
  9. SUDAFED 12 HOUR [Concomitant]
     Route: 048

REACTIONS (1)
  - PULMONARY EMBOLISM [None]
